FAERS Safety Report 5808073-6 (Version None)
Quarter: 2008Q3

REPORT INFORMATION
  Report Type: 
  Country: None (occurrence: None)
  Receive Date: 20080711
  Receipt Date: 20080630
  Transmission Date: 20090109
  Serious: Yes (Other)
  Sender: FDA-Public Use
  Company Number: US-PFIZER INC-2008054850

PATIENT
  Sex: Male
  Weight: 90.7 kg

DRUGS (1)
  1. XANAX [Suspect]
     Indication: SLEEP DISORDER
     Dates: start: 20070101, end: 20080626

REACTIONS (4)
  - CONVULSION [None]
  - HALLUCINATION [None]
  - PSYCHOTIC DISORDER [None]
  - RENAL STONE REMOVAL [None]
